FAERS Safety Report 4731196-X (Version None)
Quarter: 2005Q3

REPORT INFORMATION
  Report Type: 
  Country: None (occurrence: None)
  Receive Date: 20050729
  Receipt Date: 20050729
  Transmission Date: 20060218
  Serious: Yes (Life-Threatening, Hospitalization, Disabling)
  Sender: FDA-Public Use
  Company Number: None

PATIENT
  Sex: Female
  Weight: 88.4514 kg

DRUGS (1)
  1. XOLAIR [Suspect]
     Indication: ASTHMA
     Dosage: MONTHLY; SUB-CUTANEOUS INJECTIONS  (THERAPY DATES:  SEE NARRATIVE)
     Route: 058

REACTIONS (3)
  - BEDRIDDEN [None]
  - MIXED CONNECTIVE TISSUE DISEASE [None]
  - SCLERODERMA [None]
